FAERS Safety Report 6013342-3 (Version None)
Quarter: 2008Q4

REPORT INFORMATION
  Report Type: 
  Country: None (occurrence: None)
  Receive Date: 20081219
  Receipt Date: 20081211
  Transmission Date: 20090506
  Serious: Yes (Death)
  Sender: FDA-Public Use
  Company Number: ES-NOVOPROD-280989

PATIENT
  Age: 73 Year
  Sex: Male
  Weight: 80 kg

DRUGS (8)
  1. NOVOSEVEN [Suspect]
     Indication: ACQUIRED HAEMOPHILIA WITH ANTI FVIII, XI, OR XIII
     Dosage: 90 UG/KG, UNK
     Dates: start: 20080128
  2. SINTROM [Concomitant]
  3. DIGOXIN [Concomitant]
  4. ATACAND [Concomitant]
  5. NORVASC [Concomitant]
  6. UNI DIAMICRON [Concomitant]
  7. TAVANIC [Concomitant]
     Indication: SEPSIS
  8. AUGMENTINE                         /00756801/ [Concomitant]
     Indication: SEPSIS

REACTIONS (1)
  - SEPTIC SHOCK [None]
